FAERS Safety Report 4990600-2 (Version None)
Quarter: 2006Q2

REPORT INFORMATION
  Report Type: 
  Country: None (occurrence: None)
  Receive Date: 20060501
  Receipt Date: 20060501
  Transmission Date: 20061013
  Serious: Yes (Hospitalization)
  Sender: FDA-Public Use
  Company Number: None

PATIENT
  Age: 40 Year
  Sex: Female
  Weight: 42.6 kg

DRUGS (6)
  1. GEODON [Suspect]
     Indication: ACUTE PSYCHOSIS
     Dosage: 80 MG PO 1 BID ORAL
     Route: 048
     Dates: start: 20060418
  2. GEODON [Suspect]
     Dosage: 40 MG PO QHS ORAL
     Route: 048
     Dates: start: 20060425
  3. ZITHROMAX [Concomitant]
  4. TRUVADA [Concomitant]
  5. BACTRIM DS [Concomitant]
  6. DIFLUCAN [Concomitant]

REACTIONS (6)
  - ACQUIRED CLAW TOE [None]
  - APHASIA [None]
  - LARYNGOSPASM [None]
  - MUSCLE RIGIDITY [None]
  - NEUROLEPTIC MALIGNANT SYNDROME [None]
  - PYREXIA [None]
